FAERS Safety Report 7289662-1 (Version None)
Quarter: 2011Q1

REPORT INFORMATION
  Report Type: 
  Country: None (occurrence: None)
  Receive Date: 20110214
  Receipt Date: 20110204
  Transmission Date: 20110831
  Serious: Yes (Hospitalization)
  Sender: FDA-Public Use
  Company Number: US-BIOGENIDEC-2010BI043412

PATIENT
  Age: 64 Year
  Sex: Female

DRUGS (4)
  1. MEDICATION (NOS) [Concomitant]
     Dates: end: 20070101
  2. AVONEX [Suspect]
     Indication: MULTIPLE SCLEROSIS
     Route: 030
     Dates: start: 20090129
  3. MEDICATION (NOS) [Concomitant]
     Dates: start: 20070101
  4. AVONEX [Suspect]
     Route: 030
     Dates: start: 19960101

REACTIONS (1)
  - MYOCLONUS [None]
